FAERS Safety Report 6944605-2 (Version None)
Quarter: 2010Q3

REPORT INFORMATION
  Report Type: 
  Country: None (occurrence: None)
  Receive Date: 20100827
  Receipt Date: 20100813
  Transmission Date: 20110219
  Serious: No
  Sender: FDA-Public Use
  Company Number: US-PFIZER INC-2010102680

PATIENT
  Sex: Female
  Weight: 86 kg

DRUGS (9)
  1. XALATAN [Suspect]
     Indication: EYE OPERATION
     Dosage: UNK
  2. PAXIL [Concomitant]
     Dosage: UNK
  3. SIMVASTATIN [Concomitant]
     Dosage: UNK
  4. FEXOFENADINE [Concomitant]
     Dosage: UNK
  5. ACETAMINOPHEN AND HYDROCODONE BITARTRATE [Concomitant]
     Dosage: UNK
  6. FEOSOL [Concomitant]
     Dosage: UNK
  7. ACETYLSALICYLIC ACID [Concomitant]
     Dosage: UNK
  8. ALPRAZOLAM [Concomitant]
     Dosage: UNK,
  9. FISH OIL [Concomitant]
     Dosage: UNK

REACTIONS (1)
  - EYE PAIN [None]
